FAERS Safety Report 13905122 (Version 2)
Quarter: 2017Q3

REPORT INFORMATION
  Report Type: Spontaneous
  Country: FR (occurrence: FR)
  Receive Date: 20170825
  Receipt Date: 20170829
  Transmission Date: 20171127
  Serious: Yes (Other)
  Sender: FDA-Public Use
  Company Number: FR-BAYER-2017-160521

PATIENT
  Age: 29 Year
  Sex: Female

DRUGS (1)
  1. MIRENA [Suspect]
     Active Substance: LEVONORGESTREL
     Dosage: 20 MCG/24HR, CONT
     Route: 015
     Dates: start: 201608

REACTIONS (5)
  - Drug ineffective [None]
  - Pregnancy with contraceptive device [None]
  - Pelvic pain [Recovered/Resolved]
  - Abortion spontaneous [Unknown]
  - Post abortion haemorrhage [Recovered/Resolved]
